FAERS Safety Report 15728569 (Version 2)
Quarter: 2018Q4

REPORT INFORMATION
  Report Type: Spontaneous
  Country: US (occurrence: US)
  Receive Date: 20181217
  Receipt Date: 20181221
  Transmission Date: 20190205
  Serious: Yes (Other)
  Sender: FDA-Public Use
  Company Number: US-RADIUS HEALTH, INC.-2018US003198

PATIENT
  Sex: Female

DRUGS (1)
  1. TYMLOS [Suspect]
     Active Substance: ABALOPARATIDE
     Indication: OSTEOPOROSIS POSTMENOPAUSAL
     Dosage: 80  MCG, QD
     Route: 058
     Dates: start: 201805

REACTIONS (4)
  - Pyrexia [Unknown]
  - Antinuclear antibody positive [Unknown]
  - Lupus-like syndrome [Unknown]
  - Headache [Unknown]
